FAERS Safety Report 8391160-9 (Version None)
Quarter: 2012Q2

REPORT INFORMATION
  Report Type: 
  Country: None (occurrence: None)
  Receive Date: 20120529
  Receipt Date: 20120515
  Transmission Date: 20120825
  Serious: Yes (Death, Hospitalization, Other)
  Sender: FDA-Public Use
  Company Number: JP-ELI_LILLY_AND_COMPANY-JP201204004016

PATIENT
  Age: 44 Year
  Sex: Female

DRUGS (9)
  1. DIAZEPAM [Concomitant]
     Dosage: 236 MG, UNK
     Route: 048
     Dates: start: 20120306, end: 20120306
  2. NITRAZEPAM [Concomitant]
     Indication: BIPOLAR II DISORDER
     Dosage: 10 MG, UNK
     Route: 048
     Dates: start: 20050118
  3. DIAZEPAM [Concomitant]
     Indication: BIPOLAR II DISORDER
     Dosage: 15 MG, UNK
     Route: 048
  4. AMOBAN [Concomitant]
     Indication: BIPOLAR II DISORDER
     Dosage: 10 MG, UNK
     Route: 048
  5. ZYPREXA [Suspect]
     Dosage: 150 MG, UNK
     Route: 048
     Dates: start: 20120306, end: 20120306
  6. PHENOBARBITAL TAB [Concomitant]
     Dosage: 36 DF, UNK
     Route: 048
     Dates: start: 20120306, end: 20120306
  7. ZYPREXA [Suspect]
     Indication: BIPOLAR II DISORDER
     Dosage: 5 MG, UNK
     Route: 048
     Dates: start: 20110516
  8. PHENOBARBITAL TAB [Concomitant]
     Indication: BIPOLAR II DISORDER
     Dosage: 2 DF, UNK
  9. SILECE [Concomitant]
     Indication: BIPOLAR II DISORDER
     Dosage: 4 MG, UNK
     Route: 048

REACTIONS (10)
  - TOXICITY TO VARIOUS AGENTS [None]
  - VENTRICULAR TACHYCARDIA [None]
  - SUICIDE ATTEMPT [None]
  - RENAL FAILURE ACUTE [None]
  - HYPOXIA [None]
  - SEPTIC SHOCK [None]
  - RHABDOMYOLYSIS [None]
  - UPPER AIRWAY OBSTRUCTION [None]
  - INTENTIONAL OVERDOSE [None]
  - NEUROLEPTIC MALIGNANT SYNDROME [None]
